FAERS Safety Report 9290576 (Version 2)
Quarter: 2013Q4

REPORT INFORMATION
  Report Type: Spontaneous
  Country: CA (occurrence: CA)
  Receive Date: 20130515
  Receipt Date: 20131017
  Transmission Date: 20140711
  Serious: Yes (Life-Threatening)
  Sender: FDA-Public Use
  Company Number: CA-ELI_LILLY_AND_COMPANY-CA201305002003

PATIENT
  Age: 15 Year
  Sex: Female
  Weight: 45.3 kg

DRUGS (3)
  1. STRATTERA [Suspect]
     Indication: ATTENTION DEFICIT/HYPERACTIVITY DISORDER
     Dosage: 25 MG, QD
     Route: 048
     Dates: start: 20120822, end: 20120905
  2. ALESSE-28 [Concomitant]
     Dosage: UNK, QD
     Dates: start: 20120822
  3. NAPROSYN [Concomitant]
     Dosage: 375 MG, BID
     Dates: start: 20120802

REACTIONS (3)
  - Intentional self-injury [Recovered/Resolved]
  - Mood swings [Recovered/Resolved]
  - Anger [Recovered/Resolved]
